FAERS Safety Report 9774333 (Version 1)
Quarter: 2013Q4

REPORT INFORMATION
  Report Type: Spontaneous
  Country: US (occurrence: US)
  Receive Date: 20131220
  Receipt Date: 20131220
  Transmission Date: 20140711
  Serious: No
  Sender: FDA-Public Use
  Company Number: US-GLAXOSMITHKLINE-A1042125A

PATIENT
  Sex: 0

DRUGS (1)
  1. TAFINLAR [Suspect]
     Indication: METASTATIC MALIGNANT MELANOMA
     Dosage: 150MG UNKNOWN
     Route: 048

REACTIONS (1)
  - Hyponatraemia [Not Recovered/Not Resolved]
